FAERS Safety Report 9962362 (Version 1)
Quarter: 2014Q1

REPORT INFORMATION
  Report Type: Report from Study
  Country: US (occurrence: US)
  Receive Date: 20140305
  Receipt Date: 20140305
  Transmission Date: 20141002
  Serious: No
  Sender: FDA-Public Use
  Company Number: US-ABBVIE-13P-163-1115306-00

PATIENT
  Age: 41 Year
  Sex: Female
  Weight: 75.82 kg

DRUGS (12)
  1. HUMIRA [Suspect]
     Indication: BEHCET^S SYNDROME
     Route: 058
     Dates: start: 20130522
  2. HUMIRA [Suspect]
     Indication: UVEITIS
  3. ZOLOFT P [Concomitant]
     Indication: ANXIETY
  4. BUSPAR [Concomitant]
     Indication: ANXIETY
  5. ZONEGRAN [Concomitant]
     Indication: MIGRAINE
  6. JUNEL [Concomitant]
     Indication: CONTRACEPTION
  7. METHOTREXATE [Concomitant]
     Indication: BEHCET^S SYNDROME
  8. FOLIC ACID [Concomitant]
     Indication: VITAMIN SUPPLEMENTATION
  9. VITAMIN B2 [Concomitant]
     Indication: VITAMIN SUPPLEMENTATION
  10. VITAMIN B12 [Concomitant]
     Indication: VITAMIN SUPPLEMENTATION
  11. CALCIUM [Concomitant]
     Indication: MINERAL SUPPLEMENTATION
  12. MAGNESIUM OXIDE [Concomitant]
     Indication: MINERAL SUPPLEMENTATION

REACTIONS (3)
  - Accidental exposure to product [Recovered/Resolved]
  - Wrong technique in drug usage process [Recovered/Resolved]
  - Injury associated with device [Recovered/Resolved]
